FAERS Safety Report 5491155-9 (Version None)
Quarter: 2007Q4

REPORT INFORMATION
  Report Type: 
  Country: None (occurrence: None)
  Receive Date: 20071019
  Receipt Date: 20071009
  Transmission Date: 20080405
  Serious: Yes (Hospitalization, Other)
  Sender: FDA-Public Use
  Company Number: CA-ABBOTT-07P-028-0420085-00

PATIENT
  Age: 24 Year
  Sex: Male

DRUGS (7)
  1. VALPROIC ACID [Suspect]
     Indication: CONVULSION
  2. TOPIRAMATE [Concomitant]
     Indication: CONVULSION
  3. LEVETIRACETAM [Concomitant]
     Indication: CONVULSION
  4. CEFOTAXIME SODIUM [Concomitant]
     Indication: INFECTION PROPHYLAXIS
     Route: 042
  5. VANCOMYCIN [Concomitant]
     Indication: INFECTION PROPHYLAXIS
     Route: 042
  6. CLINDAMYCIN HCL [Concomitant]
     Indication: INFECTION PROPHYLAXIS
     Route: 042
  7. ACYCLOVIR [Concomitant]
     Indication: INFECTION PROPHYLAXIS
     Route: 042

REACTIONS (3)
  - DRUG LEVEL DECREASED [None]
  - STATUS EPILEPTICUS [None]
  - TRAUMATIC BRAIN INJURY [None]
